FAERS Safety Report 7493557-8 (Version None)
Quarter: 2011Q2

REPORT INFORMATION
  Report Type: 
  Country: None (occurrence: None)
  Receive Date: 20110520
  Receipt Date: 20110511
  Transmission Date: 20111010
  Serious: Yes (Other)
  Sender: FDA-Public Use
  Company Number: FR-AMGEN-FRASP2011025404

PATIENT
  Age: 57 Year
  Sex: Male

DRUGS (9)
  1. ENBREL [Suspect]
     Dosage: UNK
     Route: 058
     Dates: start: 20100131, end: 20100131
  2. ENBREL [Suspect]
     Dosage: UNK
     Dates: start: 20100301
  3. FELDENE [Concomitant]
     Indication: RHEUMATOID ARTHRITIS
     Dosage: 20 MG, 1X/DAY
     Route: 048
  4. RIFAMPIN AND ISONIAZID [Concomitant]
     Indication: PROPHYLACTIC CHEMOTHERAPY
     Dosage: UNK
     Route: 048
     Dates: start: 20101203
  5. ENBREL [Suspect]
     Indication: RHEUMATOID ARTHRITIS
     Dosage: UNK
     Route: 058
     Dates: start: 20100123, end: 20100206
  6. METHOTREXATE SODIUM [Suspect]
     Dosage: 10 MG, UNK
     Dates: start: 20100301
  7. ENBREL [Suspect]
     Dosage: UNK
     Route: 058
     Dates: start: 20100206, end: 20100206
  8. FOLIC ACID [Concomitant]
     Indication: RHEUMATOID ARTHRITIS
     Dosage: UNK
     Route: 048
  9. METHOTREXATE SODIUM [Suspect]
     Indication: RHEUMATOID ARTHRITIS
     Dosage: 20 MG, UNK
     Route: 042
     Dates: start: 20040101, end: 20100206

REACTIONS (2)
  - HODGKIN'S DISEASE MIXED CELLULARITY STAGE UNSPECIFIED [None]
  - PERIPHERAL MOTOR NEUROPATHY [None]
